FAERS Safety Report 4950534-6 (Version None)
Quarter: 2006Q1

REPORT INFORMATION
  Report Type: 
  Country: None (occurrence: None)
  Receive Date: 20060322
  Receipt Date: 20060313
  Transmission Date: 20060701
  Serious: Yes (Hospitalization)
  Sender: FDA-Public Use
  Company Number: 2006UW04095

PATIENT
  Age: 65 Year
  Sex: Male

DRUGS (2)
  1. IRESSA [Suspect]
     Indication: METASTATIC RENAL CELL CARCINOMA
     Route: 048
     Dates: start: 20050713
  2. INTRON A [Suspect]
     Indication: METASTATIC RENAL CELL CARCINOMA
     Dates: start: 20050713

REACTIONS (2)
  - CYSTITIS NONINFECTIVE [None]
  - HAEMATURIA [None]
